FAERS Safety Report 5700467-2 (Version None)
Quarter: 2008Q2

REPORT INFORMATION
  Report Type: 
  Country: None (occurrence: None)
  Receive Date: 20080410
  Receipt Date: 20080401
  Transmission Date: 20081010
  Serious: Yes (Hospitalization)
  Sender: FDA-Public Use
  Company Number: US-JNJFOC-20080400754

PATIENT
  Sex: Male
  Weight: 61.24 kg

DRUGS (7)
  1. FENTANYL TRANSDERMAL SYSTEM [Suspect]
     Indication: ABDOMINAL PAIN
     Route: 062
  2. NEXIUM [Concomitant]
     Indication: GASTROOESOPHAGEAL REFLUX DISEASE
     Route: 048
  3. LISINOPRIL [Concomitant]
     Indication: HYPERTENSION
     Route: 048
  4. REGLAN [Concomitant]
     Indication: DYSPEPSIA
     Route: 048
  5. NORVASC [Concomitant]
     Indication: HYPERTENSION
     Route: 048
  6. LANTUS [Concomitant]
     Indication: DIABETES MELLITUS
     Route: 058
  7. NOVOLOG [Concomitant]
     Indication: DIABETES MELLITUS
     Dosage: DAILY BEFORE MEALS
     Route: 058

REACTIONS (2)
  - BLOOD GLUCOSE ABNORMAL [None]
  - VOMITING [None]
